FAERS Safety Report 7226957-1 (Version None)
Quarter: 2011Q1

REPORT INFORMATION
  Report Type: 
  Country: None (occurrence: None)
  Receive Date: 20110114
  Receipt Date: 20110106
  Transmission Date: 20110831
  Serious: Yes (Death)
  Sender: FDA-Public Use
  Company Number: KR-JNJFOC-20110103096

PATIENT
  Age: 52 Year
  Sex: Male

DRUGS (4)
  1. IMMUNOSUPPRESIVE THERAPY [Suspect]
     Indication: PROPHYLAXIS AGAINST TRANSPLANT REJECTION
     Route: 065
  2. ALL OTHER THERAPEUTIC PRODUCTS [Suspect]
     Indication: ACUTE LEUKAEMIA
     Route: 065
  3. ITRACONAZOLE [Suspect]
     Indication: PROPHYLAXIS
     Route: 065
  4. ITRACONAZOLE [Suspect]
     Route: 065

REACTIONS (2)
  - PULMONARY MYCOSIS [None]
  - DRUG INEFFECTIVE [None]
